FAERS Safety Report 18985645 (Version 1)
Quarter: 2021Q1

REPORT INFORMATION
  Report Type: Spontaneous
  Country: TW (occurrence: TW)
  Receive Date: 20210309
  Receipt Date: 20210309
  Transmission Date: 20210420
  Serious: Yes (Other)
  Sender: FDA-Public Use
  Company Number: TW-PFIZER INC-2021213930

PATIENT
  Age: 5 Decade
  Sex: Male

DRUGS (1)
  1. ZYVOX [Suspect]
     Active Substance: LINEZOLID
     Indication: TUBERCULOSIS
     Dosage: UNK

REACTIONS (4)
  - Cellulitis [Unknown]
  - Paralysis [Unknown]
  - Off label use [Unknown]
  - Neuropathy peripheral [Unknown]
